FAERS Safety Report 22289511 (Version 1)
Quarter: 2023Q2

REPORT INFORMATION
  Report Type: Spontaneous
  Country: US (occurrence: US)
  Receive Date: 20230505
  Receipt Date: 20230505
  Transmission Date: 20230722
  Serious: No
  Sender: FDA-Public Use
  Company Number: US-BAYER-2023A057612

PATIENT

DRUGS (1)
  1. MIRALAX [Suspect]
     Active Substance: POLYETHYLENE GLYCOL 3350
     Indication: Haemorrhoid operation
     Dosage: UNK
     Route: 065
     Dates: start: 20230117

REACTIONS (4)
  - Frequent bowel movements [Unknown]
  - Proctalgia [Unknown]
  - Off label use [Unknown]
  - Incorrect dose administered [Unknown]
